FAERS Safety Report 13536731 (Version 1)
Quarter: 2017Q2

REPORT INFORMATION
  Report Type: Spontaneous
  Country: US (occurrence: US)
  Receive Date: 20170511
  Receipt Date: 20170511
  Transmission Date: 20170830
  Serious: No
  Sender: FDA-Public Use
  Company Number: US-BAYER-2017-089421

PATIENT
  Sex: Female

DRUGS (1)
  1. ALEVE [Suspect]
     Active Substance: NAPROXEN SODIUM
     Indication: PAIN
     Dosage: HAS BEEN TAKING 2 ALEVE EVERY 12 HOURS BASED ON HER DOCTOR^S ADVISE
     Route: 048
     Dates: start: 20170502

REACTIONS (2)
  - Product use issue [Unknown]
  - Pain in extremity [None]

NARRATIVE: CASE EVENT DATE: 201705
